FAERS Safety Report 11381442 (Version 2)
Quarter: 2015Q3

REPORT INFORMATION
  Report Type: Spontaneous
  Country: US (occurrence: US)
  Receive Date: 20150814
  Receipt Date: 20150819
  Transmission Date: 20151125
  Serious: No
  Sender: FDA-Public Use
  Company Number: US-HORIZON-RAV-0058-2015

PATIENT
  Age: 3 Year
  Sex: Male

DRUGS (1)
  1. RAVICTI [Suspect]
     Active Substance: GLYCEROL PHENYLBUTYRATE
     Dosage: DECREASED TO 1.5 ML THREE TIMES DAILY

REACTIONS (1)
  - Decreased appetite [Unknown]
